FAERS Safety Report 15544436 (Version 2)
Quarter: 2018Q4

REPORT INFORMATION
  Report Type: Report from Study
  Country: None (occurrence: GB)
  Receive Date: 20181024
  Receipt Date: 20181029
  Transmission Date: 20190205
  Serious: Yes (Hospitalization)
  Sender: FDA-Public Use
  Company Number: GB-ABBVIE-18K-167-2524892-00

PATIENT
  Age: 50 Year
  Sex: Female

DRUGS (1)
  1. HUMIRA [Suspect]
     Active Substance: ADALIMUMAB
     Indication: PRODUCT USED FOR UNKNOWN INDICATION
     Route: 058
     Dates: end: 20181002

REACTIONS (10)
  - Suicide attempt [Unknown]
  - Mood swings [Unknown]
  - Anger [Unknown]
  - Depressed mood [Unknown]
  - Mood altered [Unknown]
  - Euphoric mood [Unknown]
  - Aggression [Unknown]
  - Anxiety [Recovered/Resolved]
  - Tearfulness [Unknown]
  - Overdose [Unknown]

NARRATIVE: CASE EVENT DATE: 201810
